FAERS Safety Report 5632703-5 (Version None)
Quarter: 2008Q1

REPORT INFORMATION
  Report Type: 
  Country: None (occurrence: None)
  Receive Date: 20080220
  Receipt Date: 20080214
  Transmission Date: 20080703
  Serious: Yes (Disabling)
  Sender: FDA-Public Use
  Company Number: BE-PFIZER INC-2008014197

PATIENT
  Sex: Male

DRUGS (1)
  1. MEDROL [Suspect]

REACTIONS (1)
  - ARTHROPATHY [None]
